FAERS Safety Report 7302298-9 (Version None)
Quarter: 2011Q1

REPORT INFORMATION
  Report Type: 
  Country: None (occurrence: None)
  Receive Date: 20110218
  Receipt Date: 20110214
  Transmission Date: 20110831
  Serious: Yes (Other)
  Sender: FDA-Public Use
  Company Number: GB-PFIZER INC-2011033274

PATIENT
  Age: 18 Year
  Sex: Male

DRUGS (1)
  1. LUSTRAL [Suspect]

REACTIONS (2)
  - ARRHYTHMIA [None]
  - CONDUCTION DISORDER [None]
